FAERS Safety Report 15515564 (Version 1)
Quarter: 2018Q4

REPORT INFORMATION
  Report Type: Spontaneous
  Country: CN (occurrence: CN)
  Receive Date: 20181017
  Receipt Date: 20181017
  Transmission Date: 20190205
  Serious: Yes (Other)
  Sender: FDA-Public Use
  Company Number: CN-GEMINI LABORATORIES, LLC-GEM201810-000015

PATIENT
  Age: 63 Year
  Sex: Male

DRUGS (1)
  1. REPAGLINIDE. [Suspect]
     Active Substance: REPAGLINIDE

REACTIONS (2)
  - Drug-induced liver injury [Unknown]
  - Hepatic enzyme increased [Recovered/Resolved]
